FAERS Safety Report 7760483-6 (Version None)
Quarter: 2011Q3

REPORT INFORMATION
  Report Type: 
  Country: None (occurrence: None)
  Receive Date: 20110919
  Receipt Date: 20110909
  Transmission Date: 20111222
  Serious: Yes (Other)
  Sender: FDA-Public Use
  Company Number: US-ASTRAZENECA-2011SE10929

PATIENT
  Age: 52 Year
  Sex: Female

DRUGS (1)
  1. SEROQUEL [Suspect]
     Indication: SLEEP DISORDER
     Route: 048

REACTIONS (7)
  - THROMBOSIS [None]
  - OFF LABEL USE [None]
  - MULTIPLE SCLEROSIS [None]
  - MALAISE [None]
  - NASOPHARYNGITIS [None]
  - DRUG DOSE OMISSION [None]
  - CONVULSION [None]
